FAERS Safety Report 4323640-7 (Version None)
Quarter: 2004Q1

REPORT INFORMATION
  Report Type: 
  Country: None (occurrence: None)
  Receive Date: 20040323
  Receipt Date: 20040310
  Transmission Date: 20041129
  Serious: Yes (Death, Life-Threatening, Hospitalization)
  Sender: FDA-Public Use
  Company Number: A-CH2004-04321

PATIENT
  Age: 77 Year
  Sex: Female
  Weight: 56 kg

DRUGS (5)
  1. TRACLEER [Suspect]
     Indication: PULMONARY HYPERTENSION
     Dosage: SEE IMAGE
     Route: 048
     Dates: start: 20030922, end: 20031029
  2. TRACLEER [Suspect]
     Indication: PULMONARY HYPERTENSION
     Dosage: SEE IMAGE
     Route: 048
     Dates: start: 20031030, end: 20031112
  3. DIURETICS [Concomitant]
  4. DIGOXIN [Concomitant]
  5. WARFARIN SODIUM [Concomitant]

REACTIONS (16)
  - AGGRESSION [None]
  - AGITATION [None]
  - ASPIRATION [None]
  - CARDIAC DISORDER [None]
  - CARDIAC FAILURE [None]
  - CONDITION AGGRAVATED [None]
  - CONFUSIONAL STATE [None]
  - HAEMATEMESIS [None]
  - LUNG DISORDER [None]
  - MENTAL DISORDER [None]
  - MOOD SWINGS [None]
  - NAUSEA [None]
  - RESPIRATORY FAILURE [None]
  - SPINAL COMPRESSION FRACTURE [None]
  - URINARY TRACT INFECTION [None]
  - VOMITING [None]
